FAERS Safety Report 13463970 (Version 1)
Quarter: 2017Q2

REPORT INFORMATION
  Report Type: Spontaneous
  Country: US (occurrence: US)
  Receive Date: 20170420
  Receipt Date: 20170420
  Transmission Date: 20170830
  Serious: Yes (Other)
  Sender: FDA-Public Use
  Company Number: US-ROCHE-683125

PATIENT
  Age: 20 Year
  Sex: Female
  Weight: 60.1 kg

DRUGS (1)
  1. ACCUTANE [Suspect]
     Active Substance: ISOTRETINOIN
     Indication: ACNE CYSTIC
     Route: 065
     Dates: start: 19970626, end: 19971205

REACTIONS (8)
  - Colitis ulcerative [Unknown]
  - Skin papilloma [Recovered/Resolved]
  - Inflammatory bowel disease [Unknown]
  - Angular cheilitis [Recovered/Resolved]
  - Tinea infection [Unknown]
  - Depression [Recovering/Resolving]
  - Proctitis ulcerative [Unknown]
  - Oral herpes [Unknown]

NARRATIVE: CASE EVENT DATE: 19970731
